FAERS Safety Report 10225969 (Version 2)
Quarter: 2014Q2

REPORT INFORMATION
  Report Type: Spontaneous
  Country: US (occurrence: US)
  Receive Date: 20140609
  Receipt Date: 20140609
  Transmission Date: 20141212
  Serious: Yes (Other)
  Sender: FDA-Public Use
  Company Number: US-ASTELLAS-2013US004488

PATIENT
  Age: 2 Year
  Sex: Male

DRUGS (2)
  1. PROGRAF [Suspect]
     Indication: PRODUCT USED FOR UNKNOWN INDICATION
     Route: 065
  2. PROGRAF [Suspect]
     Route: 065

REACTIONS (2)
  - Drug dispensing error [Unknown]
  - Drug level increased [Unknown]
